FAERS Safety Report 5914531-6 (Version None)
Quarter: 2008Q4

REPORT INFORMATION
  Report Type: 
  Country: None (occurrence: None)
  Receive Date: 20081008
  Receipt Date: 20080923
  Transmission Date: 20090506
  Serious: Yes (Other)
  Sender: FDA-Public Use
  Company Number: 8037557

PATIENT
  Age: 70 Year
  Sex: Female

DRUGS (3)
  1. KEPPRA [Suspect]
  2. KEPPRA [Suspect]
  3. VALPROATE SODIUM [Concomitant]

REACTIONS (1)
  - PLATELET COUNT DECREASED [None]
